FAERS Safety Report 11889055 (Version 1)
Quarter: 2016Q1

REPORT INFORMATION
  Report Type: Spontaneous
  Country: US (occurrence: US)
  Receive Date: 20160105
  Receipt Date: 20160105
  Transmission Date: 20160526
  Serious: No
  Sender: FDA-Public Use
  Company Number: US-PFIZER INC-2016001205

PATIENT
  Sex: Male
  Weight: 73.94 kg

DRUGS (3)
  1. CELEBREX [Suspect]
     Active Substance: CELECOXIB
     Indication: INJECTION SITE PAIN
     Dosage: UNK
     Dates: start: 20151211
  2. NORCO [Concomitant]
     Active Substance: ACETAMINOPHEN\HYDROCODONE BITARTRATE
  3. CELEBREX [Suspect]
     Active Substance: CELECOXIB
     Indication: INJECTION SITE JOINT PAIN

REACTIONS (1)
  - Drug effect incomplete [Unknown]
